FAERS Safety Report 7094424-4 (Version None)
Quarter: 2010Q4

REPORT INFORMATION
  Report Type: 
  Country: None (occurrence: None)
  Receive Date: 20101110
  Receipt Date: 20101027
  Transmission Date: 20110411
  Serious: Yes (Other)
  Sender: FDA-Public Use
  Company Number: PHHY2010SE72517

PATIENT
  Sex: Female

DRUGS (5)
  1. RITALIN [Suspect]
     Indication: ATTENTION DEFICIT/HYPERACTIVITY DISORDER
     Dosage: 90 MG DAILY
  2. RITALIN [Suspect]
     Dosage: 70 MG DAILY
  3. RITALIN [Suspect]
     Dosage: 40 MG DAILY
  4. LEVOTHYROXINE SODIUM [Concomitant]
  5. SOBRIL [Concomitant]

REACTIONS (9)
  - CHANGE IN SUSTAINED ATTENTION [None]
  - FEELING ABNORMAL [None]
  - HEADACHE [None]
  - HYPOVENTILATION [None]
  - MUSCLE STRAIN [None]
  - OVERDOSE [None]
  - PALPITATIONS [None]
  - RETINITIS [None]
  - TREATMENT NONCOMPLIANCE [None]
